FAERS Safety Report 21124198 (Version 1)
Quarter: 2022Q3

REPORT INFORMATION
  Report Type: Spontaneous
  Country: US (occurrence: US)
  Receive Date: 20220725
  Receipt Date: 20220725
  Transmission Date: 20221026
  Serious: Yes (Hospitalization, Other)
  Sender: FDA-Public Use
  Company Number: US-BRISTOL-MYERS SQUIBB COMPANY-2022-075525

PATIENT
  Age: 75 Year
  Sex: Male

DRUGS (2)
  1. OPDIVO [Suspect]
     Active Substance: NIVOLUMAB
     Indication: Transitional cell carcinoma
     Dosage: DOSE : 3;     FREQ : EVERY 2 WEEKS
     Route: 042
     Dates: start: 20220406, end: 20220504
  2. OPDIVO [Suspect]
     Active Substance: NIVOLUMAB
     Route: 042
     Dates: start: 20220504

REACTIONS (12)
  - Hypothyroidism [Unknown]
  - Hyperthyroidism [Unknown]
  - Renal failure [Unknown]
  - Eye disorder [Unknown]
  - Diabetes mellitus [Unknown]
  - Chest discomfort [Unknown]
  - Dysphagia [Unknown]
  - Speech disorder [Unknown]
  - Dyspnoea [Unknown]
  - Balance disorder [Unknown]
  - Blood glucose increased [Unknown]
  - Toxicity to various agents [Unknown]
